FAERS Safety Report 19318727 (Version 3)
Quarter: 2021Q2

REPORT INFORMATION
  Report Type: Report from Study
  Country: FR (occurrence: FR)
  Receive Date: 20210527
  Receipt Date: 20210616
  Transmission Date: 20210717
  Serious: Yes (Death, Hospitalization)
  Sender: FDA-Public Use
  Company Number: FR-PFIZER INC-2021604761

PATIENT
  Age: 78 Year
  Sex: Female
  Weight: 58 kg

DRUGS (5)
  1. FUROSEMIDE. [Concomitant]
     Active Substance: FUROSEMIDE
     Dosage: 60 MG
     Route: 048
     Dates: start: 20210301, end: 20210421
  2. PALBOCICLIB [Suspect]
     Active Substance: PALBOCICLIB
     Indication: BREAST CANCER
     Dosage: 125 MG, CYCLIC (3 WEEKS OUT OF 4)
     Dates: start: 20200720, end: 20210208
  3. TINZAPARIN SODIUM [Concomitant]
     Active Substance: TINZAPARIN SODIUM
     Indication: ANTICOAGULANT THERAPY
     Dosage: 10000 IU
     Route: 058
     Dates: start: 20210220, end: 20210421
  4. ROCEPHINE [Concomitant]
     Active Substance: CEFTRIAXONE SODIUM
     Indication: INFECTION
     Dosage: 1 G, DAILY
     Route: 042
     Dates: start: 20210226, end: 20210304
  5. FUROSEMIDE. [Concomitant]
     Active Substance: FUROSEMIDE
     Indication: DIURETIC THERAPY
     Dosage: 80 MG, SINGLE
     Route: 041
     Dates: start: 20210228, end: 20210228

REACTIONS (8)
  - Hyperglycaemia [Recovered/Resolved]
  - Anaemia [Recovered/Resolved]
  - Anaemia [Recovered/Resolved]
  - Interstitial lung disease [Fatal]
  - Anaemia [Recovered/Resolved]
  - Lymphopenia [Recovered/Resolved]
  - Hypoglycaemia [Recovered/Resolved]
  - Hypoglycaemia [Recovered/Resolved]

NARRATIVE: CASE EVENT DATE: 20210220
